FAERS Safety Report 6472417-5 (Version None)
Quarter: 2009Q4

REPORT INFORMATION
  Report Type: 
  Country: None (occurrence: None)
  Receive Date: 20091203
  Receipt Date: 20091123
  Transmission Date: 20100525
  Serious: Yes (Hospitalization)
  Sender: FDA-Public Use
  Company Number: BR-ABBOTT-09P-020-0610240-00

PATIENT
  Sex: Female
  Weight: 90 kg

DRUGS (12)
  1. HUMIRA [Suspect]
     Indication: RHEUMATOID ARTHRITIS
     Route: 058
  2. DEFLAZACORT [Concomitant]
     Indication: DRUG USE FOR UNKNOWN INDICATION
     Route: 048
     Dates: start: 20091121
  3. ATENOLOL [Concomitant]
     Indication: DRUG USE FOR UNKNOWN INDICATION
     Route: 048
     Dates: start: 20091121
  4. LOSARTAN [Concomitant]
     Indication: DRUG USE FOR UNKNOWN INDICATION
     Route: 048
     Dates: start: 20091121
  5. AAS [Concomitant]
     Indication: ANTICOAGULANT THERAPY
     Route: 048
     Dates: start: 20091121
  6. SIMVASTATIN [Concomitant]
     Indication: DRUG USE FOR UNKNOWN INDICATION
     Route: 048
     Dates: start: 20091121
  7. METHOTREXATE [Concomitant]
     Indication: RHEUMATOID ARTHRITIS
     Route: 048
  8. OMEPRAZOLE [Concomitant]
     Indication: GASTRIC DISORDER
     Route: 048
  9. FOLIC ACID [Concomitant]
     Indication: LIVER DISORDER
     Route: 048
  10. ARAVA [Concomitant]
     Indication: RHEUMATOID ARTHRITIS
     Route: 048
  11. METICORTEN [Concomitant]
     Indication: RHEUMATOID ARTHRITIS
     Route: 048
     Dates: start: 19920101
  12. PARACETAMOL [Concomitant]
     Indication: PAIN
     Route: 048
     Dates: start: 20090923

REACTIONS (6)
  - DYSPHONIA [None]
  - DYSPNOEA [None]
  - FATIGUE [None]
  - GENERALISED OEDEMA [None]
  - LUNG DISORDER [None]
  - PAIN [None]
